FAERS Safety Report 12420976 (Version 1)
Quarter: 2016Q2

REPORT INFORMATION
  Report Type: Spontaneous
  Country: BR (occurrence: BR)
  Receive Date: 20160531
  Receipt Date: 20160531
  Transmission Date: 20160815
  Serious: Yes (Hospitalization)
  Sender: FDA-Public Use
  Company Number: BR-DSJP-DSE-2016-118017

PATIENT

DRUGS (4)
  1. VITAMIN D                          /00107901/ [Concomitant]
     Active Substance: ERGOCALCIFEROL
     Indication: BONE DISORDER
  2. BENICAR AMLO 40 MG + 5 MG COM REV CT BL AL/AL X 30 [Suspect]
     Active Substance: AMLODIPINE BESYLATE\OLMESARTAN MEDOXOMIL
     Dosage: 40/5, QD
     Dates: start: 201508
  3. BENICAR AMLO 40 MG + 5 MG COM REV CT BL AL/AL X 30 [Suspect]
     Active Substance: AMLODIPINE BESYLATE\OLMESARTAN MEDOXOMIL
     Indication: HYPERTENSION
     Dosage: 40/5, QD
     Dates: start: 201405, end: 201412
  4. BENICAR AMLO 20 MG + 5 MG COM REV CT BL AL/AL X 30 [Suspect]
     Active Substance: AMLODIPINE BESYLATE\OLMESARTAN MEDOXOMIL
     Indication: HYPERTENSION
     Dosage: 20/5, QD
     Dates: start: 201412, end: 201508

REACTIONS (3)
  - Thrombosis [Recovered/Resolved]
  - Head injury [Recovered/Resolved]
  - Hypertension [Recovered/Resolved]

NARRATIVE: CASE EVENT DATE: 2014
